FAERS Safety Report 4568101-5 (Version None)
Quarter: 2005Q1

REPORT INFORMATION
  Report Type: 
  Country: None (occurrence: None)
  Receive Date: 20050128
  Receipt Date: 20050118
  Transmission Date: 20050727
  Serious: Yes (Congenital Anomaly)
  Sender: FDA-Public Use
  Company Number: 2005-BP-00704BP

PATIENT
  Age: 20 Year
  Sex: Female

DRUGS (7)
  1. VIRAMUNE [Suspect]
     Indication: HIV INFECTION
     Dosage: 400 MG, PO
     Route: 048
     Dates: start: 20030701, end: 20040622
  2. VIDEX EC [Suspect]
     Indication: HIV INFECTION
     Dosage: 400 MG, PO
     Route: 048
     Dates: start: 20030701, end: 20040622
  3. EPIVIR [Suspect]
     Indication: HIV INFECTION
     Dosage: 300 MG, PO
     Route: 048
     Dates: start: 20030701, end: 20040622
  4. AZT [Suspect]
     Indication: HIV INFECTION
     Dosage: SEE IMAGE
     Route: 048
     Dates: start: 20040622
  5. AZT [Suspect]
     Indication: HIV INFECTION
     Dosage: SEE IMAGE
     Route: 048
     Dates: start: 20041206
  6. VIREAD [Suspect]
     Indication: HIV INFECTION
     Dosage: 300 MG, PO
     Route: 048
     Dates: start: 20040622
  7. KALETRA [Suspect]
     Indication: HIV INFECTION
     Dosage: 3 CAPS 2XDAY, PO
     Route: 048
     Dates: start: 20040622

REACTIONS (2)
  - CONGENITAL ANOMALY [None]
  - DRUG EXPOSURE DURING PREGNANCY [None]
